FAERS Safety Report 7603301-9 (Version None)
Quarter: 2011Q3

REPORT INFORMATION
  Report Type: 
  Country: None (occurrence: None)
  Receive Date: 20110701
  Receipt Date: 20110621
  Transmission Date: 20111222
  Serious: Yes (Other)
  Sender: FDA-Public Use
  Company Number: DSJ-2011-12694

PATIENT
  Age: 48 Year
  Sex: Female

DRUGS (1)
  1. AMLODIPINE BESYLATE AND OLMESARTAN MEDOXOMIL [Suspect]
     Indication: HYPERTENSION
     Dosage: 20/5 MG (1 IN 1 D), PER ORAL
     Route: 048
     Dates: start: 20110301, end: 20110601

REACTIONS (5)
  - BLOOD PRESSURE INCREASED [None]
  - HEADACHE [None]
  - TREATMENT NONCOMPLIANCE [None]
  - ECONOMIC PROBLEM [None]
  - SYNCOPE [None]
